FAERS Safety Report 5726445-5 (Version None)
Quarter: 2008Q2

REPORT INFORMATION
  Report Type: 
  Country: None (occurrence: None)
  Receive Date: 20080502
  Receipt Date: 20080425
  Transmission Date: 20081010
  Serious: Yes (Death)
  Sender: FDA-Public Use
  Company Number: B0516720A

PATIENT
  Age: 74 Year
  Sex: Female

DRUGS (8)
  1. AUGMENTIN '125' [Suspect]
     Indication: PRODUCTIVE COUGH
     Dosage: 1G THREE TIMES PER DAY
     Route: 048
     Dates: start: 20080112, end: 20080113
  2. CLOZAPINE [Suspect]
     Route: 048
     Dates: start: 20080104, end: 20080113
  3. GLUCOPHAGE [Suspect]
     Indication: DRUG USE FOR UNKNOWN INDICATION
     Dosage: 500MG TWICE PER DAY
     Route: 048
     Dates: end: 20080113
  4. AMAREL [Suspect]
     Indication: DRUG USE FOR UNKNOWN INDICATION
     Dosage: 3MG PER DAY
     Route: 048
     Dates: end: 20080113
  5. MODOPAR [Suspect]
     Indication: DRUG USE FOR UNKNOWN INDICATION
     Route: 048
     Dates: end: 20080113
  6. MODOPAR [Suspect]
     Route: 048
     Dates: end: 20080113
  7. ZOPICLONE [Suspect]
     Indication: DRUG USE FOR UNKNOWN INDICATION
     Route: 048
     Dates: end: 20080113
  8. MODECATE [Concomitant]
     Indication: DRUG USE FOR UNKNOWN INDICATION
     Route: 065

REACTIONS (1)
  - ARRHYTHMIA [None]
